FAERS Safety Report 5737913-4 (Version None)
Quarter: 2008Q2

REPORT INFORMATION
  Report Type: 
  Country: None (occurrence: None)
  Receive Date: 20080509
  Receipt Date: 20080430
  Transmission Date: 20081010
  Serious: Yes (Death)
  Sender: FDA-Public Use
  Company Number: VISP-NO-0805S-0260

PATIENT
  Age: 40 Year
  Sex: Female
  Weight: 53 kg

DRUGS (2)
  1. VISIPAQUE [Suspect]
     Indication: HAEMATURIA
     Dosage: BETWEEN 150 AND 200 ML, I.A.
     Route: 013
     Dates: start: 20080421, end: 20080421
  2. VISIPAQUE [Suspect]

REACTIONS (3)
  - LOSS OF CONSCIOUSNESS [None]
  - OXYGEN SATURATION ABNORMAL [None]
  - RESPIRATORY DISORDER [None]
